FAERS Safety Report 5934668-5 (Version None)
Quarter: 2008Q4

REPORT INFORMATION
  Report Type: 
  Country: None (occurrence: None)
  Receive Date: 20081029
  Receipt Date: 20081017
  Transmission Date: 20090506
  Serious: Yes (Other)
  Sender: FDA-Public Use
  Company Number: AU-PFIZER INC-2008090319

PATIENT

DRUGS (1)
  1. SUTENT [Suspect]

REACTIONS (1)
  - OSTEONECROSIS [None]
